FAERS Safety Report 14187648 (Version 1)
Quarter: 2017Q4

REPORT INFORMATION
  Report Type: Spontaneous
  Country: US (occurrence: None)
  Receive Date: 20171113
  Receipt Date: 20171113
  Transmission Date: 20180321
  Serious: Yes (Hospitalization)
  Sender: FDA-Public Use
  Company Number: None

PATIENT
  Sex: Male

DRUGS (2)
  1. CAPECITABINE 500MG ACCORD [Suspect]
     Active Substance: CAPECITABINE
     Indication: HEPATIC CANCER
     Dosage: 2000MG 4 TWICE DAILY , 7 DAYS ON/7 DAYS OFF BY MOUTH
     Route: 048
     Dates: start: 20170620
  2. CAPECITABINE 500MG ACCORD [Suspect]
     Active Substance: CAPECITABINE
     Indication: COLON CANCER
     Dosage: 2000MG 4 TWICE DAILY , 7 DAYS ON/7 DAYS OFF BY MOUTH
     Route: 048
     Dates: start: 20170620

REACTIONS (2)
  - Therapy cessation [None]
  - Septic shock [None]
